FAERS Safety Report 5128222-5 (Version None)
Quarter: 2006Q4

REPORT INFORMATION
  Report Type: 
  Country: None (occurrence: None)
  Receive Date: 20061017
  Receipt Date: 20060802
  Transmission Date: 20070319
  Serious: Yes (Death, Hospitalization)
  Sender: FDA-Public Use
  Company Number: GB-BAYER-200610938BNE

PATIENT
  Age: 61 Year
  Sex: Female
  Weight: 51 kg

DRUGS (7)
  1. SORAFENIB [Suspect]
     Indication: RENAL CELL CARCINOMA STAGE UNSPECIFIED
     Dosage: TOTAL DAILY DOSE: 800 MG
     Route: 048
     Dates: start: 20060428, end: 20060727
  2. MOVICOL [Concomitant]
     Indication: CONSTIPATION
     Dates: start: 20060418
  3. ACETAMINOPHEN W/ CODEINE [Concomitant]
     Indication: PAIN
     Dates: start: 20050410
  4. ADCAL-D3 [Concomitant]
     Indication: MINERAL SUPPLEMENTATION
     Dates: start: 20051021
  5. FERROGRAD [Concomitant]
     Indication: MINERAL SUPPLEMENTATION
     Dates: start: 20060428
  6. ZOMETA [Concomitant]
     Indication: BONE PAIN
     Dates: start: 20051201
  7. AUGMENTIN [Concomitant]
     Indication: INFECTION PROPHYLAXIS
     Route: 042
     Dates: start: 20060731

REACTIONS (5)
  - CONFUSIONAL STATE [None]
  - DEHYDRATION [None]
  - DYSARTHRIA [None]
  - RENAL FAILURE [None]
  - VOMITING [None]
